FAERS Safety Report 15265811 (Version 1)
Quarter: 2018Q3

REPORT INFORMATION
  Report Type: Spontaneous
  Country: FR (occurrence: FR)
  Receive Date: 20180810
  Receipt Date: 20180810
  Transmission Date: 20181010
  Serious: Yes (Life-Threatening, Hospitalization)
  Sender: FDA-Public Use
  Company Number: FR-MYLANLABS-2018M1060998

PATIENT
  Age: 51 Year
  Sex: Female
  Weight: 50 kg

DRUGS (5)
  1. THYMOGLOBULINE [Suspect]
     Active Substance: LAPINE T-LYMPHOCYTE IMMUNE GLOBULIN
     Indication: BONE MARROW CONDITIONING REGIMEN
     Dosage: 125 MG, QD
     Route: 041
     Dates: start: 20180702, end: 20180703
  2. BISOPROLOL [Suspect]
     Active Substance: BISOPROLOL
     Indication: VENTRICULAR TACHYCARDIA
     Dosage: 1.25 MG, QD
     Dates: start: 201806, end: 20180705
  3. RAMIPRIL. [Suspect]
     Active Substance: RAMIPRIL
     Indication: PRODUCT USED FOR UNKNOWN INDICATION
     Dosage: 1.25 MG, QD
     Dates: start: 2018, end: 20180705
  4. FLUDARA [Suspect]
     Active Substance: FLUDARABINE PHOSPHATE
     Indication: BONE MARROW CONDITIONING REGIMEN
     Dosage: 47 MG, QD
     Route: 041
     Dates: start: 20180628, end: 20180702
  5. BUSILVEX [Suspect]
     Active Substance: BUSULFAN
     Indication: BONE MARROW CONDITIONING REGIMEN
     Dosage: 40 MG, QD
     Route: 041
     Dates: start: 20180628, end: 20180701

REACTIONS (2)
  - Cardiogenic shock [Recovered/Resolved]
  - Ventricular dysfunction [Recovering/Resolving]

NARRATIVE: CASE EVENT DATE: 20180705
